FAERS Safety Report 25622166 (Version 2)
Quarter: 2025Q3

REPORT INFORMATION
  Report Type: Spontaneous
  Country: EU (occurrence: EU)
  Receive Date: 20250730
  Receipt Date: 20250805
  Transmission Date: 20251021
  Serious: Yes (Other)
  Sender: BIOVITRUM
  Company Number: EU-BIOVITRUM-2025-NL-009194

PATIENT
  Age: 8 Year
  Sex: Female

DRUGS (1)
  1. ANAKINRA [Suspect]
     Active Substance: ANAKINRA
     Indication: Rasmussen encephalitis
     Route: 058
     Dates: start: 202401

REACTIONS (5)
  - Off label use [Recovered/Resolved]
  - Injection site pain [Unknown]
  - Epilepsy [Recovered/Resolved]
  - Motor dysfunction [Recovering/Resolving]
  - Condition aggravated [Recovering/Resolving]

NARRATIVE: CASE EVENT DATE: 20240101
